FAERS Safety Report 4286246-4 (Version None)
Quarter: 2004Q1

REPORT INFORMATION
  Report Type: 
  Country: None (occurrence: None)
  Receive Date: 20040205
  Receipt Date: 20040205
  Transmission Date: 20041129
  Serious: Yes (Other)
  Sender: FDA-Public Use
  Company Number: None

PATIENT
  Sex: Female
  Weight: 115.6672 kg

DRUGS (2)
  1. ZYPREXA [Suspect]
     Indication: SCHIZOAFFECTIVE DISORDER
     Dates: start: 19950101, end: 20030101
  2. PROZAC [Suspect]
     Indication: DEPRESSION
     Dates: start: 19870101, end: 20030101

REACTIONS (3)
  - DEPENDENCE [None]
  - INSOMNIA [None]
  - OBESITY [None]
